FAERS Safety Report 8836996 (Version 1)
Quarter: 2012Q4

REPORT INFORMATION
  Report Type: 
  Country: US (occurrence: US)
  Receive Date: 20121012
  Receipt Date: 20121012
  Transmission Date: 20130627
  Serious: Yes (Death)
  Sender: FDA-Public Use
  Company Number: US-SANOFI-AVENTIS-2012SA073155

PATIENT
  Age: 62 Year
  Sex: Male

DRUGS (1)
  1. ELOXATIN [Suspect]
     Route: 041

REACTIONS (1)
  - Death [Fatal]
